FAERS Safety Report 12187968 (Version 1)
Quarter: 2016Q1

REPORT INFORMATION
  Report Type: Spontaneous
  Country: US (occurrence: US)
  Receive Date: 20160317
  Receipt Date: 20160317
  Transmission Date: 20160526
  Serious: Yes (Hospitalization)
  Sender: FDA-Public Use
  Company Number: US-ZYDUS-010462

PATIENT
  Age: 37 Year
  Sex: Male

DRUGS (1)
  1. OXYCODONE [Suspect]
     Active Substance: OXYCODONE
     Indication: PRODUCT USED FOR UNKNOWN INDICATION

REACTIONS (7)
  - Drug withdrawal syndrome [Unknown]
  - Agitation [Unknown]
  - Nausea [Unknown]
  - Tachypnoea [Unknown]
  - Stress cardiomyopathy [Unknown]
  - Abdominal pain [Unknown]
  - Hyperhidrosis [Unknown]
